FAERS Safety Report 8261169-4 (Version None)
Quarter: 2012Q2

REPORT INFORMATION
  Report Type: 
  Country: None (occurrence: None)
  Receive Date: 20120405
  Receipt Date: 20120330
  Transmission Date: 20120825
  Serious: Yes (Other)
  Sender: FDA-Public Use
  Company Number: US-JNJFOC-20120109646

PATIENT
  Sex: Female
  Weight: 96.16 kg

DRUGS (17)
  1. LEVAQUIN [Suspect]
     Indication: ASTHMA
     Route: 048
     Dates: start: 20120107, end: 20120114
  2. LEVAQUIN [Suspect]
     Dosage: FOR 10 DAYS
     Route: 048
     Dates: start: 20111109
  3. CIPROFLOXACIN HCL [Suspect]
     Indication: PRODUCT USED FOR UNKNOWN INDICATION
     Route: 065
     Dates: start: 20091217
  4. PROPRANOLOL [Concomitant]
     Indication: MIGRAINE
     Route: 065
  5. PROAIR HFA [Concomitant]
     Route: 055
  6. MEDROL [Suspect]
     Route: 065
     Dates: start: 20100212
  7. MEDROL [Suspect]
     Route: 065
     Dates: start: 20100415
  8. QVAR 40 [Suspect]
     Indication: PRODUCT USED FOR UNKNOWN INDICATION
     Route: 055
  9. LEVAQUIN [Suspect]
     Dosage: FOR 10 DAYS
     Route: 048
     Dates: start: 20111109
  10. LEVAQUIN [Suspect]
     Indication: BRONCHITIS
     Route: 048
     Dates: start: 20111001, end: 20111001
  11. MEDROL [Suspect]
     Indication: PRODUCT USED FOR UNKNOWN INDICATION
     Route: 065
     Dates: start: 20100610
  12. MEDROL [Suspect]
     Route: 065
     Dates: start: 20100909
  13. SYNTHROID [Concomitant]
     Indication: HYPOTHYROIDISM
     Route: 065
  14. LEVAQUIN [Suspect]
     Route: 048
     Dates: start: 20120107, end: 20120114
  15. VITAMIN B-12 [Concomitant]
     Route: 065
  16. LEVAQUIN [Suspect]
     Route: 048
     Dates: start: 20111001, end: 20111001
  17. SINGULAIR [Concomitant]
     Indication: ASTHMA
     Route: 065

REACTIONS (11)
  - ARTHRITIS [None]
  - NERVE COMPRESSION [None]
  - OEDEMA PERIPHERAL [None]
  - ARTHRALGIA [None]
  - JOINT EFFUSION [None]
  - MUSCULAR WEAKNESS [None]
  - HYPOAESTHESIA [None]
  - JOINT SWELLING [None]
  - IMMUNE SYSTEM DISORDER [None]
  - SKIN DISCOLOURATION [None]
  - TENDONITIS [None]
